FAERS Safety Report 21051883 (Version 1)
Quarter: 2022Q3

REPORT INFORMATION
  Report Type: Spontaneous
  Country: CN (occurrence: CN)
  Receive Date: 20220707
  Receipt Date: 20220707
  Transmission Date: 20221027
  Serious: Yes (Other)
  Sender: FDA-Public Use
  Company Number: CN-KYOWAKIRIN-2022BKK010463

PATIENT

DRUGS (1)
  1. TOREMIFENE [Suspect]
     Active Substance: TOREMIFENE
     Indication: Breast cancer
     Dosage: UNK
     Route: 048
     Dates: start: 201604

REACTIONS (2)
  - Breast cancer metastatic [Unknown]
  - Tumour embolism [Unknown]

NARRATIVE: CASE EVENT DATE: 20180720
